FAERS Safety Report 16012675 (Version 1)
Quarter: 2019Q1

REPORT INFORMATION
  Report Type: Spontaneous
  Country: AU (occurrence: AU)
  Receive Date: 20190227
  Receipt Date: 20190227
  Transmission Date: 20190418
  Serious: Yes (Other)
  Sender: FDA-Public Use
  Company Number: AU-009507513-1902AUS008282

PATIENT
  Age: 65 Year

DRUGS (1)
  1. EZETIMIBE MSD [Suspect]
     Active Substance: EZETIMIBE
     Indication: BLOOD CHOLESTEROL INCREASED
     Dosage: 10 MILLIGRAM, QD
     Route: 048
     Dates: end: 20121102

REACTIONS (2)
  - Paraesthesia [Recovered/Resolved with Sequelae]
  - Dysuria [Recovered/Resolved with Sequelae]

NARRATIVE: CASE EVENT DATE: 20171025
